FAERS Safety Report 5876174-2 (Version None)
Quarter: 2008Q3

REPORT INFORMATION
  Report Type: 
  Country: None (occurrence: None)
  Receive Date: 20080908
  Receipt Date: 20080423
  Transmission Date: 20090109
  Serious: No
  Sender: FDA-Public Use
  Company Number: TPA2008A00560

PATIENT
  Age: 69 Year
  Sex: Female
  Weight: 48.5349 kg

DRUGS (16)
  1. ROZEREM [Suspect]
     Indication: INSOMNIA
     Dosage: SEE IMAGE
     Route: 048
     Dates: start: 20080422, end: 20080101
  2. ROZEREM [Suspect]
     Indication: INSOMNIA
     Dosage: SEE IMAGE
     Route: 048
     Dates: start: 20080613, end: 20080101
  3. ROZEREM [Suspect]
     Indication: INSOMNIA
     Dosage: SEE IMAGE
     Route: 048
     Dates: start: 20080611, end: 20080612
  4. ROZEREM [Suspect]
     Indication: INSOMNIA
     Dosage: SEE IMAGE
     Route: 048
     Dates: start: 20080101
  5. CLOTRIMAZOLE [Concomitant]
  6. UNKNOW STEROID (ALL OTHER THERAPEUTIC PRODUCTS) [Concomitant]
  7. SINGULAIR [Concomitant]
  8. PROPAFENONE HCL [Concomitant]
  9. WARFARIN SODIUM [Concomitant]
  10. PANTOPRAZOLE SODIUM [Concomitant]
  11. CALCIUM (CALCIUM) [Concomitant]
  12. OCUTAB (ALL OTHER THERAPEUTIC PRODUCTS) [Concomitant]
  13. MAXAIR [Concomitant]
  14. FLOVENT [Concomitant]
  15. XALATAN [Concomitant]
  16. BONIVA [Concomitant]

REACTIONS (7)
  - COUGH [None]
  - DIZZINESS [None]
  - HEADACHE [None]
  - INSOMNIA [None]
  - MALAISE [None]
  - MIDDLE INSOMNIA [None]
  - TREATMENT NONCOMPLIANCE [None]
